FAERS Safety Report 9192954 (Version 1)
Quarter: 2013Q1

REPORT INFORMATION
  Report Type: Spontaneous
  Country: US (occurrence: None)
  Receive Date: 20120703
  Receipt Date: 20120703
  Transmission Date: 20140127
  Serious: No
  Sender: FDA-Public Use
  Company Number: PHEH2012US009812

PATIENT
  Age: 35 Year
  Sex: Female
  Weight: 47.6 kg

DRUGS (2)
  1. GILENYA (FTY)CAPSULE, 0.5MG [Suspect]
     Indication: MULTIPLE SCLEROSIS
     Route: 048
     Dates: start: 20120508
  2. DEXAMETHASONE (DEXAMETHASONE) [Concomitant]

REACTIONS (5)
  - Visual impairment [None]
  - Fatigue [None]
  - Sluggishness [None]
  - Vision blurred [None]
  - Heart rate decreased [None]
